FAERS Safety Report 24026794 (Version 1)
Quarter: 2024Q2

REPORT INFORMATION
  Report Type: Spontaneous
  Country: CN (occurrence: CN)
  Receive Date: 20240628
  Receipt Date: 20240628
  Transmission Date: 20240716
  Serious: No
  Sender: FDA-Public Use
  Company Number: CN-ROCHE-3550404

PATIENT
  Age: 18 Year

DRUGS (1)
  1. ALECENSA [Suspect]
     Active Substance: ALECTINIB HYDROCHLORIDE
     Indication: Sarcomatoid carcinoma
     Route: 065

REACTIONS (3)
  - Gene mutation [Unknown]
  - Off label use [Unknown]
  - Disease progression [Unknown]
